FAERS Safety Report 4681603-6 (Version None)
Quarter: 2005Q2

REPORT INFORMATION
  Report Type: 
  Country: None (occurrence: None)
  Receive Date: 20050602
  Receipt Date: 20050518
  Transmission Date: 20051028
  Serious: Yes (Other)
  Sender: FDA-Public Use
  Company Number: USA030434572

PATIENT
  Age: 70 Year
  Sex: Female
  Weight: 55 kg

DRUGS (4)
  1. FORTEO [Suspect]
     Indication: OSTEOPOROSIS
     Dosage: 20 UG/1 DAY
     Dates: start: 20020101, end: 20050401
  2. VITAMIN D [Concomitant]
  3. AVAPRO [Concomitant]
  4. LORAZEPAM [Concomitant]

REACTIONS (22)
  - AMNESIA [None]
  - AORTIC STENOSIS [None]
  - ASTHENIA [None]
  - ATRIAL FIBRILLATION [None]
  - CONSTIPATION [None]
  - DIFFICULTY IN WALKING [None]
  - EYE DISORDER [None]
  - EYE SWELLING [None]
  - FATIGUE [None]
  - FEELING ABNORMAL [None]
  - GAIT DISTURBANCE [None]
  - HEADACHE [None]
  - HERPES ZOSTER [None]
  - INJECTION SITE ERYTHEMA [None]
  - INJECTION SITE HAEMORRHAGE [None]
  - INTERNATIONAL NORMALISED RATIO INCREASED [None]
  - NERVOUSNESS [None]
  - NEURALGIA [None]
  - SENSATION OF PRESSURE [None]
  - SUPRAVENTRICULAR TACHYCARDIA [None]
  - VASCULAR CALCIFICATION [None]
  - VISION BLURRED [None]
